FAERS Safety Report 5083959-1 (Version None)
Quarter: 2006Q3

REPORT INFORMATION
  Report Type: 
  Country: None (occurrence: None)
  Receive Date: 20060727
  Receipt Date: 20060613
  Transmission Date: 20061208
  Serious: Yes (Other)
  Sender: FDA-Public Use
  Company Number: 2006056501

PATIENT
  Sex: Female
  Weight: 124.2856 kg

DRUGS (1)
  1. LYRICA [Suspect]
     Indication: ILL-DEFINED DISORDER
     Dosage: 150 MG (75 MG, BID) UNKNOWN
     Route: 065
     Dates: start: 20051128, end: 20051229

REACTIONS (1)
  - OEDEMA [None]
